FAERS Safety Report 7394381-7 (Version None)
Quarter: 2011Q2

REPORT INFORMATION
  Report Type: 
  Country: None (occurrence: None)
  Receive Date: 20110405
  Receipt Date: 20110323
  Transmission Date: 20111010
  Serious: Yes (Other)
  Sender: FDA-Public Use
  Company Number: US-ELI_LILLY_AND_COMPANY-US201002005950

PATIENT
  Sex: Female

DRUGS (2)
  1. FORTEO [Suspect]
     Dosage: 20 UG, QD
     Route: 065
  2. FORTEO [Suspect]
     Indication: OSTEOPOROSIS
     Dosage: 20 UG, QD
     Route: 065
     Dates: start: 20091001

REACTIONS (7)
  - KNEE ARTHROPLASTY [None]
  - CYSTITIS [None]
  - BALANCE DISORDER [None]
  - DISCOMFORT [None]
  - INJECTION SITE HAEMORRHAGE [None]
  - ABDOMINAL PAIN [None]
  - ASTHENIA [None]
